FAERS Safety Report 23544381 (Version 1)
Quarter: 2024Q1

REPORT INFORMATION
  Report Type: Spontaneous
  Country: US (occurrence: US)
  Receive Date: 20240220
  Receipt Date: 20240220
  Transmission Date: 20240410
  Serious: No
  Sender: FDA-Public Use
  Company Number: US-JNJFOC-20240185758

PATIENT
  Age: 88 Year
  Sex: Female

DRUGS (1)
  1. TYLENOL 8HR [Suspect]
     Active Substance: ACETAMINOPHEN
     Indication: Insomnia
     Dosage: 1 CAPLET TWICE A DAY
     Route: 065
     Dates: start: 20240129

REACTIONS (4)
  - Feeling abnormal [Not Recovered/Not Resolved]
  - Nasal congestion [Not Recovered/Not Resolved]
  - Product use in unapproved indication [Unknown]
  - Expired product administered [Unknown]

NARRATIVE: CASE EVENT DATE: 20240129
